FAERS Safety Report 25239401 (Version 5)
Quarter: 2025Q4

REPORT INFORMATION
  Report Type: Report from Study
  Country: US (occurrence: US)
  Receive Date: 20250425
  Receipt Date: 20251027
  Transmission Date: 20260117
  Serious: Yes (Hospitalization, Other)
  Sender: ACADIA PHARMACEUTICALS
  Company Number: US-ACADIA PHARMACEUTICALS INC.-ACA-2025-PIM-004628

PATIENT
  Sex: Male

DRUGS (1)
  1. NUPLAZID [Suspect]
     Active Substance: PIMAVANSERIN TARTRATE
     Indication: Parkinson^s disease psychosis
     Dosage: 34 MILLIGRAM, QD
     Route: 048

REACTIONS (12)
  - Hip fracture [Not Recovered/Not Resolved]
  - Hip surgery [Not Recovered/Not Resolved]
  - Hip fracture [Recovered/Resolved]
  - Hip surgery [Recovered/Resolved]
  - Hernia repair [Recovered/Resolved]
  - Hernia repair [Recovered/Resolved]
  - Knee operation [Not Recovered/Not Resolved]
  - Hallucination [Not Recovered/Not Resolved]
  - Fall [Not Recovered/Not Resolved]
  - Skin lesion [Not Recovered/Not Resolved]
  - Arthropod bite [Not Recovered/Not Resolved]
  - Constipation [Unknown]

NARRATIVE: CASE EVENT DATE: 20240101
